FAERS Safety Report 5818896-5 (Version None)
Quarter: 2008Q3

REPORT INFORMATION
  Report Type: 
  Country: None (occurrence: None)
  Receive Date: 20080717
  Receipt Date: 20080711
  Transmission Date: 20090109
  Serious: Yes (Hospitalization)
  Sender: FDA-Public Use
  Company Number: SP01978

PATIENT
  Sex: Female

DRUGS (1)
  1. XIFAXAN [Suspect]
     Indication: GASTROENTERITIS
     Dosage: 600 MG, ORAL
     Route: 048
     Dates: start: 20080601, end: 20080601

REACTIONS (4)
  - ECZEMA [None]
  - IMMUNE SYSTEM DISORDER [None]
  - MUSCULOSKELETAL PAIN [None]
  - RASH ERYTHEMATOUS [None]
